FAERS Safety Report 17494306 (Version 1)
Quarter: 2020Q1

REPORT INFORMATION
  Report Type: Spontaneous
  Country: US (occurrence: US)
  Receive Date: 20200304
  Receipt Date: 20200304
  Transmission Date: 20200409
  Serious: Yes (Death, Life-Threatening, Hospitalization)
  Sender: FDA-Public Use
  Company Number: US-MYLANLABS-2020M1023309

PATIENT
  Age: 53 Year
  Sex: Female

DRUGS (5)
  1. CYCLOPHOSPHAMIDE. [Suspect]
     Active Substance: CYCLOPHOSPHAMIDE
     Indication: ADULT T-CELL LYMPHOMA/LEUKAEMIA
     Dosage: SINGLE DOSE ON DAY 5 OF EACH CYCLE; COMPLETED 4 CYCLES OVER A 12-WEEK PERIOD
     Route: 065
  2. ETOPOSIDE. [Suspect]
     Active Substance: ETOPOSIDE
     Indication: ADULT T-CELL LYMPHOMA/LEUKAEMIA
     Dosage: CONTINUOUS INFUSION OVER 4 DAYS; COMPLETED 4 CYCLES OVER A 12-WEEK PERIOD
     Route: 042
  3. DOXORUBICIN [Suspect]
     Active Substance: DOXORUBICIN
     Indication: ADULT T-CELL LYMPHOMA/LEUKAEMIA
     Dosage: CONTINUOUS INFUSION OVER 4 DAYS; DOSE EQUIVALENT OF 19.5 MG/DAY
     Route: 042
  4. PREDNISONE. [Suspect]
     Active Substance: PREDNISONE
     Indication: ADULT T-CELL LYMPHOMA/LEUKAEMIA
     Dosage: ON DAYS 1-5; COMPLETED 4 CYCLES OVER A 12-WEEK PERIOD
     Route: 065
  5. VINCRISTINE [Suspect]
     Active Substance: VINCRISTINE
     Indication: ADULT T-CELL LYMPHOMA/LEUKAEMIA
     Dosage: CONTINUOUS INFUSION OVER 4 DAYS; COMPLETED 4 CYCLES OVER A 12-WEEK PERIOD
     Route: 042

REACTIONS (6)
  - Febrile neutropenia [Fatal]
  - Sepsis [Fatal]
  - Stress cardiomyopathy [Recovering/Resolving]
  - Cardiac failure [Recovering/Resolving]
  - Septic shock [Fatal]
  - Cardiogenic shock [Recovering/Resolving]
